FAERS Safety Report 14492150 (Version 1)
Quarter: 2018Q1

REPORT INFORMATION
  Report Type: Report from Study
  Country: US (occurrence: US)
  Receive Date: 20180206
  Receipt Date: 20180206
  Transmission Date: 20180509
  Serious: Yes (Hospitalization)
  Sender: FDA-Public Use
  Company Number: US-BAYER-2017-250731

PATIENT
  Age: 52 Year
  Sex: Female

DRUGS (6)
  1. ADEMPAS [Suspect]
     Active Substance: RIOCIGUAT
     Indication: PULMONARY ARTERIAL HYPERTENSION
     Dosage: UNK
  2. REMODULIN [Suspect]
     Active Substance: TREPROSTINIL
     Dosage: 0.2 MG/ML, UNK
  3. MIDODRINE [Concomitant]
     Active Substance: MIDODRINE
     Dosage: 20 MG, TID ON DIALYSIS DAYS
  4. REMODULIN [Suspect]
     Active Substance: TREPROSTINIL
     Dosage: 0.4 MG/ML, UNK
  5. MIDODRINE [Concomitant]
     Active Substance: MIDODRINE
     Dosage: UNK
  6. ADEMPAS [Suspect]
     Active Substance: RIOCIGUAT
     Indication: PULMONARY ARTERIAL HYPERTENSION
     Dosage: 2 MG, TID
     Route: 048
     Dates: start: 20160305

REACTIONS (8)
  - Pain [None]
  - Fluid overload [None]
  - Weight increased [None]
  - Vomiting [None]
  - Hypotension [None]
  - Hospitalisation [None]
  - Migraine [None]
  - Diarrhoea [None]

NARRATIVE: CASE EVENT DATE: 201801
